FAERS Safety Report 16939988 (Version 1)
Quarter: 2019Q4

REPORT INFORMATION
  Report Type: Spontaneous
  Country: GB (occurrence: GB)
  Receive Date: 20191021
  Receipt Date: 20191021
  Transmission Date: 20200122
  Serious: Yes (Other)
  Sender: FDA-Public Use
  Company Number: GB-TEVA-2019-GB-1123436

PATIENT
  Age: 57 Year
  Sex: Female
  Weight: 76 kg

DRUGS (10)
  1. OCTASA [Concomitant]
     Active Substance: MESALAMINE
     Dosage: 6 DF
     Dates: start: 20190318
  2. ATORVASTATIN [Concomitant]
     Active Substance: ATORVASTATIN
     Dosage: TAKE AT NIGHT, 1 DF
     Dates: start: 20190318
  3. DICYCLOVERINE HYDROCHLORIDE [Concomitant]
     Active Substance: DICYCLOMINE HYDROCHLORIDE
     Dosage: 3 DF
     Dates: start: 20190318
  4. TRIMETHOPRIM. [Concomitant]
     Active Substance: TRIMETHOPRIM
     Dosage: TAKE FOR 7 DAYS,  2 DF
     Dates: start: 20190814
  5. ZAPAIN [Concomitant]
     Active Substance: ACETAMINOPHEN\CODEINE PHOSPHATE
     Dosage: ONE OR TWO TO BE TAKEN FOUR TIMES DAILY
     Dates: start: 20190318
  6. SYMBICORT [Concomitant]
     Active Substance: BUDESONIDE\FORMOTEROL FUMARATE DIHYDRATE
     Dosage: 2 DF
     Dates: start: 20190318
  7. OMEPRAZOLE. [Concomitant]
     Active Substance: OMEPRAZOLE
     Dosage: 1 DF
     Dates: start: 20190318
  8. NITROFURANTOIN. [Suspect]
     Active Substance: NITROFURANTOIN
     Dosage: 200 MG
     Dates: start: 20190813
  9. AZATHIOPRINE. [Concomitant]
     Active Substance: AZATHIOPRINE
     Dosage: 2 DF
     Dates: start: 20190318
  10. SALBUTAMOL [Concomitant]
     Active Substance: ALBUTEROL
     Dosage: 2 DF
     Dates: start: 20190318

REACTIONS (4)
  - Rash [Recovering/Resolving]
  - Feeling hot [Unknown]
  - Pallor [Unknown]
  - Joint stiffness [Unknown]

NARRATIVE: CASE EVENT DATE: 20190814
